FAERS Safety Report 23491863 (Version 1)
Quarter: 2024Q1

REPORT INFORMATION
  Report Type: Report from Study
  Country: US (occurrence: US)
  Receive Date: 20240207
  Receipt Date: 20240207
  Transmission Date: 20240410
  Serious: No
  Sender: FDA-Public Use
  Company Number: US-ORG100014127-2023001071

PATIENT
  Age: 51 Year
  Sex: Female

DRUGS (6)
  1. LYSODREN [Suspect]
     Active Substance: MITOTANE
     Indication: Adrenal gland cancer
     Dosage: TAKE 2 TABLETS TWICE DAILY
     Route: 048
     Dates: start: 20210726
  2. CALCIUM CHW 500MG [Concomitant]
     Indication: Product used for unknown indication
  3. CARBOPLATIN [Concomitant]
     Active Substance: CARBOPLATIN
     Indication: Product used for unknown indication
  4. DOK CAP 100MG [Concomitant]
     Indication: Product used for unknown indication
  5. ETOPOSIDE [Concomitant]
     Active Substance: ETOPOSIDE
     Indication: Product used for unknown indication
  6. NEULASTA KIT 6MG/0.6M [Concomitant]
     Indication: Product used for unknown indication

REACTIONS (1)
  - Adverse event [Not Recovered/Not Resolved]
